FAERS Safety Report 18344942 (Version 1)
Quarter: 2020Q4

REPORT INFORMATION
  Report Type: Spontaneous
  Country: FR (occurrence: FR)
  Receive Date: 20201005
  Receipt Date: 20201005
  Transmission Date: 20210114
  Serious: Yes (Other)
  Sender: FDA-Public Use
  Company Number: FR-BRISTOL-MYERS SQUIBB COMPANY-BMS-2020-077894

PATIENT
  Age: 74 Year
  Sex: Female
  Weight: 49 kg

DRUGS (2)
  1. KARDEGIC [Concomitant]
     Active Substance: ASPIRIN DL-LYSINE
     Indication: PRODUCT USED FOR UNKNOWN INDICATION
     Route: 065
  2. HYDREA [Suspect]
     Active Substance: HYDROXYUREA
     Indication: ESSENTIAL THROMBOCYTHAEMIA
     Dosage: 1 CAPSULE IN THE MORNING AND HALF OF A CAPSULE IN THE AFTERNOON, FREQUENCY:MORNING AND AFTERNOON
     Route: 048
     Dates: start: 2014

REACTIONS (10)
  - Limb discomfort [Unknown]
  - Syncope [Unknown]
  - Intentional product misuse [Unknown]
  - Vertigo [Unknown]
  - Glossodynia [Unknown]
  - Dysphagia [Unknown]
  - Raynaud^s phenomenon [Unknown]
  - Diarrhoea [Unknown]
  - Wrong technique in product usage process [Unknown]
  - Fatigue [Unknown]

NARRATIVE: CASE EVENT DATE: 20200921
